FAERS Safety Report 5492688-1 (Version None)
Quarter: 2007Q4

REPORT INFORMATION
  Report Type: 
  Country: None (occurrence: None)
  Receive Date: 20071017
  Receipt Date: 20071003
  Transmission Date: 20080405
  Serious: Yes (Other)
  Sender: FDA-Public Use
  Company Number: 2007332898

PATIENT
  Sex: Female

DRUGS (1)
  1. SOFTMINT SENSATION LISTERINE (MENTHOL, METHYL SALICYLATE, EUCALYPTOL, [Suspect]
     Indication: DENTAL PLAQUE
     Dosage: ORAL
     Route: 048

REACTIONS (7)
  - GINGIVAL BLISTER [None]
  - GINGIVAL ULCERATION [None]
  - MOUTH ULCERATION [None]
  - OEDEMA MOUTH [None]
  - ORAL INTAKE REDUCED [None]
  - ORAL MUCOSAL BLISTERING [None]
  - ORAL PAIN [None]
